FAERS Safety Report 21844923 (Version 1)
Quarter: 2023Q1

REPORT INFORMATION
  Report Type: Spontaneous
  Country: US (occurrence: US)
  Receive Date: 20230110
  Receipt Date: 20230110
  Transmission Date: 20230417
  Serious: No
  Sender: FDA-Public Use
  Company Number: US-009507513-2212USA000346

PATIENT
  Sex: Female
  Weight: 101.6 kg

DRUGS (5)
  1. VERQUVO [Suspect]
     Active Substance: VERICIGUAT
     Indication: Cardiac failure congestive
     Dosage: 10 MILLIGRAM, ONCE DAILY
     Route: 048
     Dates: start: 20210823, end: 20221111
  2. NEURONTIN [GABAPENTIN] [Concomitant]
     Dosage: 100 MG CAPSULE; 120 CAPSULE, 2 CAPSULES BY MOTH TWICE DAILY. MAX DAILY AMOUNT: 400 MG.
     Route: 048
     Dates: start: 20211222
  3. LIPITOR [Concomitant]
     Active Substance: ATORVASTATIN CALCIUM
     Dosage: 1 TABLET BY MOUTH AT BEDTIME. 90 TAB
     Route: 048
     Dates: start: 20210422
  4. ZETIA [Concomitant]
     Active Substance: EZETIMIBE
     Dosage: 1 TABLET BY MOUTH DAILY. 30 TABLET
     Route: 048
     Dates: start: 20211208
  5. PLAVIX [Concomitant]
     Active Substance: CLOPIDOGREL BISULFATE
     Dosage: 1 TABLET BY MOUTH ONCE DAILY; 90 TABLET
     Route: 048
     Dates: start: 20211208

REACTIONS (3)
  - Hypotension [Recovering/Resolving]
  - Ill-defined disorder [Unknown]
  - Muscle relaxant therapy [Unknown]

NARRATIVE: CASE EVENT DATE: 20220101
